FAERS Safety Report 4673224-6 (Version None)
Quarter: 2005Q2

REPORT INFORMATION
  Report Type: 
  Country: None (occurrence: None)
  Receive Date: 20050523
  Receipt Date: 20050523
  Transmission Date: 20051028
  Serious: Yes (Hospitalization)
  Sender: FDA-Public Use
  Company Number: None

PATIENT
  Age: 54 Year
  Sex: Male
  Weight: 58.9676 kg

DRUGS (5)
  1. THALIDOMIDE [Suspect]
     Dates: start: 20050510
  2. DEXAMETHASONE [Suspect]
  3. CISPLATIN [Suspect]
  4. CYCLOPHOSPHAMIDE [Suspect]
  5. VELCADE [Suspect]

REACTIONS (1)
  - PNEUMONIA [None]
